FAERS Safety Report 8590268-2 (Version None)
Quarter: 2012Q3

REPORT INFORMATION
  Report Type: 
  Country: None (occurrence: None)
  Receive Date: 20120813
  Receipt Date: 20120807
  Transmission Date: 20120928
  Serious: Yes (Death, Life-Threatening, Hospitalization, Disabling)
  Sender: FDA-Public Use
  Company Number: US-GLAXOSMITHKLINE-A0982339A

PATIENT
  Age: 58 Year
  Sex: Male
  Weight: 91 kg

DRUGS (8)
  1. SPIRONOLACTONE [Concomitant]
     Dosage: 25MG PER DAY
     Route: 048
  2. FLOLAN [Suspect]
     Indication: PRODUCT USED FOR UNKNOWN INDICATION
     Dosage: 11U CONTINUOUS
     Route: 065
     Dates: start: 20100721
  3. TORSEMIDE [Concomitant]
     Dosage: 5MG PER DAY
     Route: 048
  4. RIFAXIMIN [Concomitant]
     Dosage: 550MG TWICE PER DAY
     Route: 048
  5. LASIX [Concomitant]
     Dosage: 20MG AS REQUIRED
     Route: 048
  6. CETIRIZINE [Concomitant]
     Dosage: 10MG PER DAY
     Route: 048
  7. BENICAR HCT [Concomitant]
     Route: 048
  8. CLONAZEPAM [Concomitant]
     Dosage: .5MG AT NIGHT
     Route: 048

REACTIONS (6)
  - INTRACRANIAL ANEURYSM [None]
  - ANEURYSM RUPTURED [None]
  - ANEURYSM REPAIR [None]
  - HAEMORRHAGE INTRACRANIAL [None]
  - CEREBRAL HAEMORRHAGE [None]
  - MENTAL STATUS CHANGES [None]
